FAERS Safety Report 12078253 (Version 1)
Quarter: 2016Q1

REPORT INFORMATION
  Report Type: Other
  Country: GB (occurrence: GB)
  Receive Date: 20160215
  Receipt Date: 20160215
  Transmission Date: 20160526
  Serious: Yes (Other)
  Sender: FDA-Public Use
  Company Number: GB-MYLANLABS-2016M1005071

PATIENT

DRUGS (20)
  1. CITALOPRAM [Concomitant]
     Active Substance: CITALOPRAM HYDROBROMIDE
     Indication: DEPRESSED MOOD
     Dosage: 2 DF, QD
     Dates: start: 20150729
  2. GLYCERYL TRINITRATE [Concomitant]
     Active Substance: NITROGLYCERIN
     Dosage: SPRAY ONE OR TWO PUFFS UNDER THE TONGUE AS NEED...
     Route: 060
     Dates: start: 20160111
  3. LEVOTHYROXINE. [Concomitant]
     Active Substance: LEVOTHYROXINE
     Dosage: 1 DF, QD
     Dates: start: 20150729
  4. PARACETAMOL [Concomitant]
     Active Substance: ACETAMINOPHEN
     Dosage: 2 QDS PRN
     Dates: start: 20150729
  5. REPLENS [Concomitant]
     Active Substance: CARBOMER 934\GLYCERIN\METHYLPARABEN\PROPYLPARABEN\SODIUM HYDROXIDE
     Dosage: USE AS DIRECTED
     Dates: start: 20151220
  6. SOLIFENACIN [Concomitant]
     Active Substance: SOLIFENACIN
     Dosage: 1 DF, QD
     Dates: start: 20150729
  7. SYMBICORT [Concomitant]
     Active Substance: BUDESONIDE\FORMOTEROL FUMARATE DIHYDRATE
     Dosage: 1 DF, BID (TO CONTROL CHEST SY)
     Route: 055
     Dates: start: 20150729
  8. ISOSORBIDE MONONITRATE. [Concomitant]
     Active Substance: ISOSORBIDE MONONITRATE
     Dosage: 1 DF, BID (MORNING AND MID-AFTERNOON)
     Dates: start: 20160125
  9. CARMELLOSE [Concomitant]
     Dosage: USE AS DIRECTED
     Dates: start: 20150729
  10. ESTRADIOL. [Concomitant]
     Active Substance: ESTRADIOL
     Dosage: 1 DF, (INSERT ONE TWICE WEEKLY)
     Dates: start: 20150729
  11. IBUPROFEN. [Concomitant]
     Active Substance: IBUPROFEN
     Dosage: 1 DF, TID
     Route: 061
     Dates: start: 20160111
  12. LAMOTRIGINE. [Concomitant]
     Active Substance: LAMOTRIGINE
     Dosage: 3 DF, QD
     Dates: start: 20150729, end: 20151210
  13. PREDNISOLONE. [Concomitant]
     Active Substance: PREDNISOLONE
     Dosage: 6 DF, QD (6 DAILY 5 DAYS)
     Dates: start: 20151027, end: 20151028
  14. TRIMETHOPRIM. [Concomitant]
     Active Substance: TRIMETHOPRIM
     Indication: INFECTION
     Dosage: 1 DF, BID
     Dates: start: 20151209, end: 20151212
  15. FEXOFENADINE [Concomitant]
     Active Substance: FEXOFENADINE\FEXOFENADINE HYDROCHLORIDE
     Dosage: 1 DF, QD
     Dates: start: 20150729
  16. FLUTICASONE FUROATE [Concomitant]
     Active Substance: FLUTICASONE FUROATE
     Dosage: 2 DF, QD (INHALE ONE SPRAY INTO EACH NOSTRIL ONCE A DAY)
     Route: 055
     Dates: start: 20150729
  17. ZOPICLONE [Concomitant]
     Active Substance: ZOPICLONE
     Dosage: 1 DF, QD (AT NIGHT)
     Dates: start: 20151020
  18. BISOPROLOL [Suspect]
     Active Substance: BISOPROLOL
     Dosage: UNK
     Dates: start: 20160111, end: 20160115
  19. MIRTAZAPINE. [Concomitant]
     Active Substance: MIRTAZAPINE
     Dosage: 1 DF, QD (AT NIGHT)
     Dates: start: 20150729, end: 20160111
  20. TERBUTALINE [Concomitant]
     Active Substance: TERBUTALINE
     Dosage: 1 DF, UNK (INHALE 1 DOSE FOUR TIMES A DAY AS NEEDED TO RE)
     Route: 055
     Dates: start: 20150729

REACTIONS (1)
  - Anaphylactic reaction [Recovered/Resolved]

NARRATIVE: CASE EVENT DATE: 20160116
